FAERS Safety Report 12648359 (Version 1)
Quarter: 2016Q3

REPORT INFORMATION
  Report Type: Spontaneous
  Country: CN (occurrence: CN)
  Receive Date: 20160812
  Receipt Date: 20160812
  Transmission Date: 20161109
  Serious: Yes (Hospitalization)
  Sender: FDA-Public Use
  Company Number: CN-BAYER-2016-151397

PATIENT
  Age: 46 Year

DRUGS (1)
  1. KOGENATE FS [Suspect]
     Active Substance: ANTIHEMOPHILIC FACTOR, HUMAN RECOMBINANT
     Dosage: DURING THE TREATMENT, ABOUT 1350 PIECES 250 IU KOGENATE WERE USED.

REACTIONS (1)
  - Renal failure [Not Recovered/Not Resolved]
